FAERS Safety Report 6365302-0 (Version None)
Quarter: 2009Q3

REPORT INFORMATION
  Report Type: 
  Country: None (occurrence: None)
  Receive Date: 20090919
  Receipt Date: 20090812
  Transmission Date: 20100115
  Serious: No
  Sender: FDA-Public Use
  Company Number: US-ABBOTT-09P-163-0591270-00

PATIENT
  Sex: Female
  Weight: 49.94 kg

DRUGS (3)
  1. HUMIRA [Suspect]
     Indication: ANKYLOSING SPONDYLITIS
     Route: 058
     Dates: start: 20080901
  2. CLARINEX [Concomitant]
     Indication: SEASONAL ALLERGY
  3. NASAL SPRAY [Concomitant]
     Indication: SEASONAL ALLERGY
     Route: 045

REACTIONS (1)
  - INJECTION SITE IRRITATION [None]
